FAERS Safety Report 10907194 (Version 2)
Quarter: 2015Q3

REPORT INFORMATION
  Report Type: Spontaneous
  Country: IT (occurrence: IT)
  Receive Date: 20150312
  Receipt Date: 20150915
  Transmission Date: 20151125
  Serious: Yes (Hospitalization)
  Sender: FDA-Public Use
  Company Number: US-ASTRAZENECA-2015SE22548

PATIENT
  Age: 83 Year
  Sex: Female

DRUGS (7)
  1. COMPETACT [Concomitant]
     Active Substance: METFORMIN HYDROCHLORIDE\PIOGLITAZONE HYDROCHLORIDE
     Dosage: 15/MG/850/MG
  2. ALIFLUS-DISKUS [Concomitant]
     Dosage: 50/100
  3. BRETARIS GENUAIR [Concomitant]
     Active Substance: ACLIDINIUM BROMIDE
  4. BLOPRESID [Suspect]
     Active Substance: CANDESARTAN CILEXETIL\HYDROCHLOROTHIAZIDE
     Indication: HYPERTENSION
     Dosage: 32 MG/12.5 MG, 1 DF EVERY DAY
     Route: 048
     Dates: start: 20130101, end: 20150303
  5. OXIGEN [Concomitant]
  6. FLUIMUCIL [Concomitant]
     Active Substance: ACETYLCYSTEINE
  7. LEVOXACIN [Concomitant]
     Active Substance: LEVOFLOXACIN

REACTIONS (1)
  - Syncope [Recovering/Resolving]

NARRATIVE: CASE EVENT DATE: 20150303
